FAERS Safety Report 13022453 (Version 2)
Quarter: 2017Q1

REPORT INFORMATION
  Report Type: Spontaneous
  Country: JP (occurrence: JP)
  Receive Date: 20161213
  Receipt Date: 20170104
  Transmission Date: 20170428
  Serious: Yes (Life-Threatening)
  Sender: FDA-Public Use
  Company Number: JP-ELI_LILLY_AND_COMPANY-JP201609011422

PATIENT
  Age: 68 Year
  Sex: Male
  Weight: 35 kg

DRUGS (5)
  1. ERBITUX [Suspect]
     Active Substance: CETUXIMAB
     Indication: LIP AND/OR ORAL CAVITY CANCER
     Dosage: 518 MG, WEEKLY (1/W)
     Route: 042
     Dates: start: 20160607, end: 20160607
  2. ERBITUX [Suspect]
     Active Substance: CETUXIMAB
     Dosage: 334 MG, WEEKLY (1/W)
     Route: 042
     Dates: start: 20160628, end: 20160628
  3. PACLITAXEL. [Concomitant]
     Active Substance: PACLITAXEL
     Indication: LIP AND/OR ORAL CAVITY CANCER
     Dosage: 103 MG, WEEKLY (1/W)
     Route: 065
     Dates: start: 20160607, end: 20160607
  4. ERBITUX [Suspect]
     Active Substance: CETUXIMAB
     Dosage: 331 MG, WEEKLY (1/W)
     Route: 042
     Dates: start: 20160614, end: 20160614
  5. PACLITAXEL. [Concomitant]
     Active Substance: PACLITAXEL
     Dosage: 105 MG, WEEKLY (1/W)
     Route: 065
     Dates: start: 20160614, end: 20160614

REACTIONS (2)
  - Diffuse alveolar damage [Recovered/Resolved]
  - Off label use [Unknown]

NARRATIVE: CASE EVENT DATE: 20160716
